FAERS Safety Report 20843541 (Version 1)
Quarter: 2022Q2

REPORT INFORMATION
  Report Type: Other
  Country: US (occurrence: US)
  Receive Date: 20220518
  Receipt Date: 20220518
  Transmission Date: 20220721
  Serious: Yes (Other)
  Sender: FDA-Public Use
  Company Number: US-Glenmark Generics Europe Ltd.-GGEL20120200192

PATIENT
  Age: 68 Year
  Sex: Female

DRUGS (3)
  1. PRAVASTATIN SODIUM [Suspect]
     Active Substance: PRAVASTATIN SODIUM
     Indication: Hyperlipidaemia
     Dosage: 40 MILLIGRAM
     Route: 048
     Dates: start: 20110901, end: 20111005
  2. WARFARIN [Concomitant]
     Active Substance: WARFARIN
     Indication: Product used for unknown indication
     Route: 065
  3. METOPROLOL [Concomitant]
     Active Substance: METOPROLOL
     Indication: Product used for unknown indication
     Route: 065

REACTIONS (3)
  - Hemiplegia [Recovering/Resolving]
  - Muscular weakness [Recovered/Resolved with Sequelae]
  - Muscle spasms [Recovering/Resolving]

NARRATIVE: CASE EVENT DATE: 20110923
